FAERS Safety Report 18375497 (Version 1)
Quarter: 2020Q4

REPORT INFORMATION
  Report Type: Spontaneous
  Country: US (occurrence: US)
  Receive Date: 20201012
  Receipt Date: 20201012
  Transmission Date: 20210114
  Serious: Yes (Death)
  Sender: FDA-Public Use
  Company Number: None

PATIENT
  Age: 56 Year
  Sex: Male
  Weight: 107.6 kg

DRUGS (1)
  1. REMDESIVIR EUA [Suspect]
     Active Substance: REMDESIVIR

REACTIONS (3)
  - Aspartate aminotransferase increased [None]
  - Alanine aminotransferase increased [None]
  - Hypotension [None]

NARRATIVE: CASE EVENT DATE: 20200926
